FAERS Safety Report 8032330 (Version 3)
Quarter: 2013Q2

REPORT INFORMATION
  Report Type: Spontaneous
  Country: US (occurrence: US)
  Receive Date: 20110713
  Receipt Date: 20130405
  Transmission Date: 20140414
  Serious: No
  Sender: FDA-Public Use
  Company Number: US-PFIZER INC-2011154788

PATIENT
  Age: 48 Year
  Sex: Female
  Weight: 64.4 kg

DRUGS (6)
  1. GENOTROPIN MQ [Suspect]
     Indication: GROWTH HORMONE DEFICIENCY
     Dosage: 0.2 MG, DAILY
     Route: 058
     Dates: start: 201106
  2. NEFAZODONE [Concomitant]
     Indication: DIZZINESS
     Dosage: 100MG HALF A TABLET DAILY
     Route: 048
  3. NEFAZODONE [Concomitant]
     Indication: MUSCLE TIGHTNESS
     Dosage: 100 MG, UNK
  4. BUSPIRONE [Concomitant]
     Indication: DIZZINESS
     Dosage: 30 MG, 2X/DAY
     Route: 048
  5. BUSPIRONE [Concomitant]
     Indication: MUSCLE TIGHTNESS
     Dosage: 10 MG, UNK
  6. LEVOTHYROXINE [Concomitant]
     Dosage: 25 UG, UNK

REACTIONS (5)
  - Local swelling [Unknown]
  - Drug ineffective [Unknown]
  - Alopecia [Not Recovered/Not Resolved]
  - Fluid retention [Unknown]
  - Myalgia [Unknown]
